FAERS Safety Report 15860533 (Version 2)
Quarter: 2019Q1

REPORT INFORMATION
  Report Type: Other
  Country: FR (occurrence: FR)
  Receive Date: 20190123
  Receipt Date: 20190215
  Transmission Date: 20190417
  Serious: Yes (Hospitalization)
  Sender: FDA-Public Use
  Company Number: FR-CELLTRION INC.-2019FR017968

PATIENT

DRUGS (3)
  1. IMUREL                             /00001501/ [Suspect]
     Active Substance: AZATHIOPRINE SODIUM
     Indication: GRANULOMATOSIS WITH POLYANGIITIS
     Dosage: 100 MG, DAILY
     Route: 048
     Dates: start: 20120605, end: 201506
  2. RITUXIMAB (UNKNOWN) [Suspect]
     Active Substance: RITUXIMAB
     Indication: GRANULOMATOSIS WITH POLYANGIITIS
     Dosage: 500 MG, Q4WEEKS
     Route: 042
     Dates: start: 20140613, end: 20161219
  3. ENDOXAN                            /00021102/ [Suspect]
     Active Substance: CYCLOPHOSPHAMIDE
     Indication: GRANULOMATOSIS WITH POLYANGIITIS
     Dosage: 1133 MG, Q4WEEKS
     Route: 042
     Dates: start: 201111, end: 20120419

REACTIONS (2)
  - Underdose [Unknown]
  - Renal cancer [Recovered/Resolved with Sequelae]

NARRATIVE: CASE EVENT DATE: 20180613
